FAERS Safety Report 19950388 (Version 1)
Quarter: 2021Q4

REPORT INFORMATION
  Report Type: Spontaneous
  Country: US (occurrence: US)
  Receive Date: 20211013
  Receipt Date: 20211013
  Transmission Date: 20220303
  Serious: Yes (Other)
  Sender: FDA-Public Use
  Company Number: None

PATIENT
  Age: 46 Year
  Sex: Female

DRUGS (1)
  1. ENBREL [Suspect]
     Active Substance: ETANERCEPT
     Indication: Rheumatoid arthritis
     Dosage: ?          OTHER FREQUENCY:EVERY 7 DAYS;
     Route: 058
     Dates: start: 20200508

REACTIONS (2)
  - Malaise [None]
  - Intentional dose omission [None]

NARRATIVE: CASE EVENT DATE: 20211008
